FAERS Safety Report 6322430 (Version 5)
Quarter: 2018Q4

REPORT INFORMATION
  Report Type: Spontaneous
  Country: DE (occurrence: DE)
  Receive Date: 20070530
  Receipt Date: 20181205
  Transmission Date: 20190205
  Serious: Yes (Hospitalization)
  Sender: FDA-Public Use
  Company Number: DE-JNJFOC-20070506102

PATIENT
  Sex: Female
  Weight: 2.85 kg

DRUGS (1)
  1. IBUPROFEN. [Suspect]
     Active Substance: IBUPROFEN
     Indication: EXPOSURE DURING PREGNANCY

REACTIONS (6)
  - Ductus arteriosus premature closure [Unknown]
  - Neonatal cardiac failure [Recovered/Resolved]
  - Premature baby [Unknown]
  - Tricuspid valve incompetence [Unknown]
  - Cardiac hypertrophy [Not Recovered/Not Resolved]
  - Pulmonary valve incompetence [Unknown]
